APPROVED DRUG PRODUCT: ROBINUL
Active Ingredient: GLYCOPYRROLATE
Strength: 0.2MG/ML
Dosage Form/Route: INJECTABLE;INJECTION
Application: N014764 | Product #001
Applicant: AH ROBINS CO
Approved: Approved Prior to Jan 1, 1982 | RLD: No | RS: No | Type: DISCN